FAERS Safety Report 25645990 (Version 3)
Quarter: 2025Q3

REPORT INFORMATION
  Report Type: Spontaneous
  Country: EU (occurrence: EU)
  Receive Date: 20250805
  Receipt Date: 20250922
  Transmission Date: 20251020
  Serious: No
  Sender: PFIZER
  Company Number: EU-PFIZER INC-202500154499

PATIENT
  Age: 51 Year
  Sex: Female

DRUGS (1)
  1. MEDROXYPROGESTERONE [Suspect]
     Active Substance: MEDROXYPROGESTERONE
     Indication: Contraception
     Dates: start: 20250616, end: 20250616

REACTIONS (2)
  - Needle issue [Recovered/Resolved]
  - Device leakage [Recovered/Resolved]

NARRATIVE: CASE EVENT DATE: 20250616
